FAERS Safety Report 6415280-0 (Version None)
Quarter: 2009Q4

REPORT INFORMATION
  Report Type: 
  Country: None (occurrence: None)
  Receive Date: 20091026
  Receipt Date: 20091026
  Transmission Date: 20100525
  Serious: No
  Sender: FDA-Public Use
  Company Number: None

PATIENT
  Age: 36 Year
  Sex: Female
  Weight: 108.6 kg

DRUGS (2)
  1. PRISTIQ [Suspect]
     Indication: ANXIETY
     Dosage: PRISTIQ 50 MG ONCE DAILY BY MOUTH
     Route: 048
     Dates: start: 20091002, end: 20091020
  2. PRISTIQ [Suspect]
     Indication: DEPRESSION
     Dosage: PRISTIQ 50 MG ONCE DAILY BY MOUTH
     Route: 048
     Dates: start: 20091002, end: 20091020

REACTIONS (15)
  - BALANCE DISORDER [None]
  - CONFUSIONAL STATE [None]
  - CRYING [None]
  - DIZZINESS [None]
  - DYSKINESIA [None]
  - FEAR [None]
  - FEELING ABNORMAL [None]
  - IMPAIRED DRIVING ABILITY [None]
  - MENTAL DISORDER [None]
  - MENTAL IMPAIRMENT [None]
  - MOOD SWINGS [None]
  - NAUSEA [None]
  - PALPITATIONS [None]
  - PHOTOPSIA [None]
  - VISION BLURRED [None]
